FAERS Safety Report 8301269-3 (Version None)
Quarter: 2012Q2

REPORT INFORMATION
  Report Type: 
  Country: None (occurrence: None)
  Receive Date: 20120420
  Receipt Date: 20120418
  Transmission Date: 20120825
  Serious: Yes (Death, Hospitalization)
  Sender: FDA-Public Use
  Company Number: US-B.I. PHARMACEUTICALS,INC./RIDGEFIELD-2012-BP-07392BP

PATIENT
  Sex: Male

DRUGS (8)
  1. PRADAXA [Suspect]
     Indication: ATRIAL FIBRILLATION
     Dosage: 300 MG
     Route: 048
     Dates: start: 20110412
  2. NEPHROCAPS [Concomitant]
     Indication: PROPHYLAXIS
     Dosage: 1 MG
     Route: 048
  3. CARDIZEM CD [Concomitant]
     Indication: HYPERTENSION
     Dosage: 120 MG
     Route: 048
  4. PROTONIX [Concomitant]
     Dosage: 40 MG
     Route: 048
  5. POTASSIUM CHLORIDE [Concomitant]
     Dosage: 20 MEQ
     Route: 048
  6. LIPITOR [Concomitant]
     Indication: BLOOD CHOLESTEROL INCREASED
     Dosage: 5 MG
     Route: 048
  7. LASIX [Concomitant]
     Dosage: 20 MG
     Route: 048
  8. SYNTHROID [Concomitant]
     Indication: HYPOTHYROIDISM
     Dosage: 150 MCG
     Route: 048

REACTIONS (2)
  - GASTROINTESTINAL DISORDER [None]
  - CEREBROVASCULAR ACCIDENT [None]
